FAERS Safety Report 14307409 (Version 2)
Quarter: 2018Q3

REPORT INFORMATION
  Report Type: Spontaneous
  Country: US (occurrence: US)
  Receive Date: 20171220
  Receipt Date: 20180813
  Transmission Date: 20181010
  Serious: No
  Sender: FDA-Public Use
  Company Number: US-PFIZER INC-2017536984

PATIENT
  Age: 55 Year
  Sex: Female
  Weight: 108.86 kg

DRUGS (3)
  1. PRISTIQ EXTENDED?RELEASE [Concomitant]
     Active Substance: DESVENLAFAXINE SUCCINATE
     Indication: DEPRESSION
     Dosage: 150 MG, DAILY (2 TABLETS BY MOUTH IN THE MORNING AND 1 TABLET BY MOUTH AT NIGHT)
     Route: 048
  2. LYRICA [Suspect]
     Active Substance: PREGABALIN
     Indication: NERVE INJURY
     Dosage: 150MG ONE CAPSULE BY MOUTH THREE TIMES A DAY
     Route: 048
  3. LYRICA [Suspect]
     Active Substance: PREGABALIN
     Indication: PAIN IN EXTREMITY
     Dosage: 150 MG CAPSULE BY MOUTH THREE TIMES A DAY
     Route: 048

REACTIONS (8)
  - Pain in extremity [Recovered/Resolved]
  - Hyperhidrosis [Not Recovered/Not Resolved]
  - Hyperhidrosis [Recovered/Resolved]
  - Cold sweat [Not Recovered/Not Resolved]
  - Cold sweat [Recovered/Resolved]
  - Nausea [Not Recovered/Not Resolved]
  - Withdrawal syndrome [Unknown]
  - Influenza like illness [Recovered/Resolved]

NARRATIVE: CASE EVENT DATE: 20171129
